FAERS Safety Report 5128055-X (Version None)
Quarter: 2006Q4

REPORT INFORMATION
  Report Type: 
  Country: None (occurrence: None)
  Receive Date: 20061010
  Receipt Date: 20060925
  Transmission Date: 20070319
  Serious: Yes (Hospitalization)
  Sender: FDA-Public Use
  Company Number: 2006117162

PATIENT
  Age: 8 Year
  Sex: Male
  Weight: 21 kg

DRUGS (8)
  1. NEURONTIN [Suspect]
     Dosage: 200 MG, ORAL
     Route: 048
     Dates: start: 20060809
  2. BACTRIM [Suspect]
     Dates: start: 20060809, end: 20060818
  3. ROVAMYCINE     (SPIRAMYCIN) [Suspect]
     Dosage: INTRAVENOUS
     Route: 042
     Dates: start: 20060811, end: 20060822
  4. CEFTAZIDIME PENTAHYDRATE [Suspect]
     Dosage: 3 GRAM, INTRAVENOUS
     Route: 042
     Dates: start: 20060809, end: 20060821
  5. ACETAMINOPHEN [Suspect]
     Dosage: INTRAVENOUS
     Route: 042
     Dates: start: 20060809
  6. VANCOMYCIN [Suspect]
     Dosage: 800 MG, INTRAVENOUS
     Route: 042
     Dates: start: 20060809, end: 20060821
  7. VALACYCLOVIR [Concomitant]
  8. CODEINE PHOSPHATE HEMIHYDRATE [Concomitant]

REACTIONS (2)
  - COLD AGGLUTININS POSITIVE [None]
  - HAEMOLYTIC ANAEMIA [None]
